FAERS Safety Report 4300779-3 (Version None)
Quarter: 2004Q1

REPORT INFORMATION
  Report Type: 
  Country: None (occurrence: None)
  Receive Date: 20040218
  Receipt Date: 20040203
  Transmission Date: 20041129
  Serious: Yes (Hospitalization)
  Sender: FDA-Public Use
  Company Number: 2003IM000633

PATIENT
  Age: 63 Year
  Sex: Female

DRUGS (12)
  1. ACTIMMUNE [Suspect]
     Indication: HEPATIC CIRRHOSIS
     Dosage: 200 UG;TIW;SUBCUTANEOUS
     Route: 058
     Dates: start: 20020716, end: 20030606
  2. ACTIMMUNE [Suspect]
     Indication: HEPATIC FIBROSIS
     Dosage: 200 UG;TIW;SUBCUTANEOUS
     Route: 058
     Dates: start: 20020716, end: 20030606
  3. ACTIMMUNE [Suspect]
     Indication: HEPATITIS C VIRUS
     Dosage: 200 UG;TIW;SUBCUTANEOUS
     Route: 058
     Dates: start: 20020716, end: 20030606
  4. LANTUS [Concomitant]
  5. LOVENOX [Concomitant]
  6. PLAVIX [Concomitant]
  7. LOPRESSOR [Concomitant]
  8. LOPID [Concomitant]
  9. ALTACE [Concomitant]
  10. PROTONIX [Concomitant]
  11. TUMS [Concomitant]
  12. CATAPRES [Concomitant]

REACTIONS (5)
  - ANAEMIA [None]
  - ELECTROCARDIOGRAM ST SEGMENT DEPRESSION [None]
  - HAEMODIALYSIS [None]
  - MYOCARDIAL INFARCTION [None]
  - RENAL FAILURE CHRONIC [None]
